FAERS Safety Report 5148568-4 (Version None)
Quarter: 2006Q4

REPORT INFORMATION
  Report Type: 
  Country: None (occurrence: None)
  Receive Date: 20060918
  Receipt Date: 20060315
  Transmission Date: 20070319
  Serious: Yes (Other)
  Sender: FDA-Public Use
  Company Number: US-JNJFOC-20060304241

PATIENT
  Sex: Female

DRUGS (2)
  1. TOPAMAX [Suspect]
     Indication: EPILEPSY
     Dosage: 100 MG, 3 IN 1 DAY, ORAL
     Route: 048
  2. PHENOBARBITAL TAB [Concomitant]

REACTIONS (1)
  - HEPATIC ENZYME INCREASED [None]
